FAERS Safety Report 16619913 (Version 1)
Quarter: 2019Q3

REPORT INFORMATION
  Report Type: Report from Study
  Country: ES (occurrence: ES)
  Receive Date: 20190723
  Receipt Date: 20190723
  Transmission Date: 20191004
  Serious: Yes (Life-Threatening, Hospitalization)
  Sender: FDA-Public Use
  Company Number: ES-MYLANLABS-2019M1068812

PATIENT
  Age: 76 Year
  Sex: Male

DRUGS (5)
  1. SINTROM [Interacting]
     Active Substance: ACENOCOUMAROL
     Indication: DEEP VEIN THROMBOSIS
     Dosage: UNK UNK, QD (|| UNIDAD DE FRECUENCIA: 1 D?A)
     Route: 048
     Dates: start: 200708, end: 20161115
  2. METFORMIN [Concomitant]
     Active Substance: METFORMIN HYDROCHLORIDE
     Indication: DIABETES MELLITUS
     Dosage: 1.7 MILLIGRAM, QD, || DOSIS UNIDAD FRECUENCIA: 1.7 MG-MILIGRAMOS || DOSIS POR TOMA: 1.7 MG-MILIGRAMO
     Route: 048
     Dates: start: 2010
  3. TAMSULOSIN HYDROCHLORIDE. [Concomitant]
     Active Substance: TAMSULOSIN HYDROCHLORIDE
     Indication: BENIGN PROSTATIC HYPERPLASIA
     Dosage: || DOSIS UNIDAD FRECUENCIA: 0.4 MG-MILIGRAMOS || DOSIS POR TOMA: 0.4 MG-MILIGRAMOS || N? TOMAS POR U
     Route: 048
     Dates: start: 201207
  4. PRAVASTATIN. [Suspect]
     Active Substance: PRAVASTATIN
     Indication: HYPERLIPIDAEMIA
     Dosage: || DOSIS UNIDAD FRECUENCIA: 10 MG-MILIGRAMOS || DOSIS POR TOMA: 10 MG-MILIGRAMOS || N? TOMAS POR UNI
     Route: 048
     Dates: start: 2010, end: 20161115
  5. CARVEDILOL. [Interacting]
     Active Substance: CARVEDILOL
     Indication: PRODUCT USED FOR UNKNOWN INDICATION
     Dosage: || DOSIS UNIDAD FRECUENCIA: 6.25 MG-MILIGRAMOS || DOSIS POR TOMA: 6.25 MG-MILIGRAMOS || N? TOMAS POR
     Route: 048
     Dates: start: 201209

REACTIONS (2)
  - Haemorrhage intracranial [Recovering/Resolving]
  - Drug interaction [Unknown]

NARRATIVE: CASE EVENT DATE: 20161115
